FAERS Safety Report 21968073 (Version 1)
Quarter: 2023Q1

REPORT INFORMATION
  Report Type: Spontaneous
  Country: US (occurrence: US)
  Receive Date: 20230208
  Receipt Date: 20230208
  Transmission Date: 20230418
  Serious: No
  Sender: FDA-Public Use
  Company Number: US-PFIZER INC-202300051674

PATIENT
  Age: 70 Year
  Sex: Female
  Weight: 77.56 kg

DRUGS (4)
  1. PAXLOVID [Suspect]
     Active Substance: NIRMATRELVIR\RITONAVIR
     Indication: COVID-19 treatment
     Dosage: 300MG:100MG DOSE PACK, TWICE A DAY
     Route: 048
     Dates: start: 20230130, end: 20230201
  2. BUDESONIDE [Concomitant]
     Active Substance: BUDESONIDE
     Indication: Autoimmune hepatitis
     Dosage: 6 MG, ONCE A DAY
     Route: 048
     Dates: start: 2020, end: 20230130
  3. VALSARTAN [Concomitant]
     Active Substance: VALSARTAN
  4. BACLOFEN [Concomitant]
     Active Substance: BACLOFEN

REACTIONS (1)
  - Product prescribing error [Unknown]

NARRATIVE: CASE EVENT DATE: 20230130
